FAERS Safety Report 8827087 (Version 2)
Quarter: 2012Q4

REPORT INFORMATION
  Report Type: 
  Country: JP (occurrence: JP)
  Receive Date: 20121005
  Receipt Date: 20121016
  Transmission Date: 20130627
  Serious: Yes (Death)
  Sender: FDA-Public Use
  Company Number: JP-JNJFOC-20121003369

PATIENT
  Age: 72 Year
  Sex: Male

DRUGS (18)
  1. XARELTO [Suspect]
     Indication: THROMBOSIS PROPHYLAXIS
     Route: 048
     Dates: start: 20120728, end: 20120915
  2. NIZORAL [Concomitant]
     Route: 061
  3. RABEPRAZOLE [Concomitant]
     Route: 048
  4. AMLODIPINE [Concomitant]
     Route: 048
  5. ENALAPRIL MALEATE [Concomitant]
     Route: 048
  6. SPIRONOLACTONE [Concomitant]
     Route: 048
  7. PRAVASTATIN SODIUM [Concomitant]
     Route: 048
  8. BIOFERMIN [Concomitant]
     Route: 048
  9. POLYFUL [Concomitant]
     Route: 048
  10. PROTOPIC [Concomitant]
     Route: 061
  11. LAC B [Concomitant]
     Route: 048
  12. BERIZYM [Concomitant]
     Route: 048
  13. GENTACIN [Concomitant]
     Route: 061
  14. SODIUM VALPROATE [Concomitant]
     Route: 048
  15. ALL OTHER MEDICATIONS [Concomitant]
     Route: 061
  16. VICTOZA [Concomitant]
     Route: 058
  17. GLIMEPIRIDE [Concomitant]
     Route: 048
  18. MEVALOTIN [Concomitant]
     Route: 048

REACTIONS (1)
  - Acute myocardial infarction [Fatal]
